FAERS Safety Report 8636990 (Version 3)
Quarter: 2012Q4

REPORT INFORMATION
  Report Type: 
  Country: IE (occurrence: IE)
  Receive Date: 20120626
  Receipt Date: 20120914
  Transmission Date: 20130627
  Serious: Yes (Other)
  Sender: FDA-Public Use
  Company Number: IE-ROCHE-1081199

PATIENT
  Age: 19 Year
  Sex: Female
  Weight: 63.7 kg

DRUGS (12)
  1. XOLAIR [Suspect]
     Indication: ASTHMA
     Route: 058
     Dates: start: 20120530
  2. XOLAIR [Suspect]
     Route: 058
     Dates: start: 20120613
  3. XOLAIR [Suspect]
     Route: 065
     Dates: start: 20120709
  4. ADRENALINE [Concomitant]
     Route: 065
  5. CALCICHEW D3 [Concomitant]
     Route: 065
  6. CETRINE [Concomitant]
     Route: 065
  7. YASMIN [Concomitant]
     Route: 065
  8. SALAMOL [Concomitant]
     Route: 065
  9. SINGULAIR [Concomitant]
     Route: 065
  10. FLIXOTIDE [Concomitant]
     Route: 065
  11. SERETIDE [Concomitant]
     Route: 065
  12. COMBIVENT [Concomitant]
     Route: 065

REACTIONS (6)
  - Vision blurred [Recovered/Resolved with Sequelae]
  - Nausea [Recovered/Resolved with Sequelae]
  - Throat tightness [Recovered/Resolved with Sequelae]
  - Abdominal pain upper [Recovered/Resolved with Sequelae]
  - Headache [Recovered/Resolved with Sequelae]
  - Drug ineffective [Unknown]
